FAERS Safety Report 8212058-2 (Version None)
Quarter: 2012Q1

REPORT INFORMATION
  Report Type: 
  Country: None (occurrence: None)
  Receive Date: 20120315
  Receipt Date: 20120307
  Transmission Date: 20120608
  Serious: Yes (Hospitalization, Other)
  Sender: FDA-Public Use
  Company Number: PHHY2011JP099991

PATIENT
  Sex: Male
  Weight: 60 kg

DRUGS (9)
  1. ADALAT CC [Concomitant]
     Dosage: 40 MG, UNK
     Route: 048
  2. DIART [Concomitant]
     Dosage: 30 MG, UNK
     Route: 048
     Dates: start: 20091114
  3. MUCODYNE [Concomitant]
     Dosage: 750 MG, UNK
     Route: 048
     Dates: start: 20091114
  4. ALLOPURINOL [Concomitant]
     Dosage: 100 MG, UNK
     Route: 048
     Dates: start: 20091114
  5. ADALAT CC [Concomitant]
     Indication: HYPERTENSION
     Dosage: 20 MG, UNK
     Route: 048
     Dates: start: 20091114
  6. ATELEC [Concomitant]
     Indication: HYPERTENSION
     Dosage: 10 MG, UNK
     Route: 048
     Dates: start: 20101215
  7. DASEN [Concomitant]
     Dosage: 30 MG, UNK
     Route: 048
     Dates: start: 20091114
  8. DIOVAN HCT [Suspect]
     Indication: HYPERTENSION
     Dosage: 1 DF, DAILY
     Route: 048
     Dates: start: 20100811, end: 20110112
  9. DIOVAN [Concomitant]
     Indication: HYPERTENSION
     Dosage: 80 MG, UNK
     Route: 048
     Dates: start: 20100623, end: 20100811

REACTIONS (2)
  - RENAL IMPAIRMENT [None]
  - CARDIAC FAILURE [None]
